FAERS Safety Report 12584251 (Version 3)
Quarter: 2016Q4

REPORT INFORMATION
  Report Type: Spontaneous
  Country: US (occurrence: US)
  Receive Date: 20160722
  Receipt Date: 20161004
  Transmission Date: 20170207
  Serious: No
  Sender: FDA-Public Use
  Company Number: US-GLAXOSMITHKLINE-US2016GSK101029

PATIENT
  Age: 57 Year
  Sex: Male
  Weight: 74.83 kg

DRUGS (2)
  1. SUMATRIPTAN (SUMATRIPTAN SUCCINATE) SOLUTION FOR INJECTION IN PRE-FILL [Suspect]
     Active Substance: SUMATRIPTAN
     Indication: MIGRAINE
     Dosage: UNK
     Dates: start: 2014
  2. SUMATRIPTAN (SUMATRIPTAN SUCCINATE) [Concomitant]
     Active Substance: SUMATRIPTAN SUCCINATE
     Indication: MIGRAINE
     Dosage: 100 MG, PRN
     Route: 048
     Dates: start: 2013

REACTIONS (7)
  - Injection site discomfort [Unknown]
  - Injury associated with device [Unknown]
  - Underdose [Unknown]
  - Product quality issue [Unknown]
  - Device malfunction [Unknown]
  - Device breakage [Unknown]
  - Needle issue [Unknown]

NARRATIVE: CASE EVENT DATE: 20160711
